FAERS Safety Report 18495666 (Version 1)
Quarter: 2020Q4

REPORT INFORMATION
  Report Type: Spontaneous
  Country: US (occurrence: US)
  Receive Date: 20201112
  Receipt Date: 20201112
  Transmission Date: 20210114
  Serious: Yes (Other)
  Sender: FDA-Public Use
  Company Number: NVSC2020US302392

PATIENT
  Age: 71 Year
  Sex: Male

DRUGS (2)
  1. GEMCITABINE. [Suspect]
     Active Substance: GEMCITABINE
     Indication: PROSTATE CANCER
     Dosage: UNK (9 CYCLES)
     Route: 065
  2. CARBOPLATIN. [Suspect]
     Active Substance: CARBOPLATIN
     Indication: PROSTATE CANCER
     Dosage: UNK (9 CYCLES)
     Route: 065

REACTIONS (4)
  - Second primary malignancy [Unknown]
  - Bladder cancer [Unknown]
  - Haematuria [Unknown]
  - Product use in unapproved indication [Unknown]
